FAERS Safety Report 13948610 (Version 4)
Quarter: 2020Q1

REPORT INFORMATION
  Report Type: Report from Study
  Country: US (occurrence: US)
  Receive Date: 20170908
  Receipt Date: 20200116
  Transmission Date: 20200409
  Serious: Yes (Other)
  Sender: FDA-Public Use
  Company Number: US-ROCHE-1986819

PATIENT
  Age: 28 Year
  Sex: Female
  Weight: 84.9 kg

DRUGS (6)
  1. OXYBUTIN [Concomitant]
     Active Substance: OXYBUTYNIN
     Dosage: ONGOING YES
     Route: 048
  2. XANAX [Concomitant]
     Active Substance: ALPRAZOLAM
     Indication: ANXIETY
     Route: 065
  3. BACLOFEN. [Concomitant]
     Active Substance: BACLOFEN
     Indication: MUSCLE SPASTICITY
     Dosage: ONGOING YES; FOUR TIMES A DAY
     Route: 048
     Dates: start: 201910
  4. OCREVUS [Suspect]
     Active Substance: OCRELIZUMAB
     Dosage: ONGOING: YES; WHEN CD19 COUNT SAYS SHE NEEDS IT
     Route: 042
     Dates: start: 201706
  5. DILANTIN [Concomitant]
     Active Substance: PHENYTOIN
     Indication: SEIZURE
     Dosage: ONGOING: YES; AT BEDTIME
     Route: 048
     Dates: start: 2009
  6. OCREVUS [Suspect]
     Active Substance: OCRELIZUMAB
     Indication: RELAPSING-REMITTING MULTIPLE SCLEROSIS
     Route: 065
     Dates: start: 20170523

REACTIONS (17)
  - Chest pain [Not Recovered/Not Resolved]
  - Dyspnoea [Not Recovered/Not Resolved]
  - Hypersomnia [Unknown]
  - Abdominal pain upper [Not Recovered/Not Resolved]
  - Heat stroke [Not Recovered/Not Resolved]
  - Pulmonary oedema [Not Recovered/Not Resolved]
  - Headache [Not Recovered/Not Resolved]
  - Dyspepsia [Not Recovered/Not Resolved]
  - Wheezing [Not Recovered/Not Resolved]
  - Hyperhidrosis [Recovered/Resolved]
  - Vomiting [Unknown]
  - Productive cough [Not Recovered/Not Resolved]
  - Reduced bladder capacity [Unknown]
  - Lower respiratory tract congestion [Not Recovered/Not Resolved]
  - Nasal congestion [Not Recovered/Not Resolved]
  - Fatigue [Not Recovered/Not Resolved]
  - Muscle spasticity [Not Recovered/Not Resolved]

NARRATIVE: CASE EVENT DATE: 2019
